FAERS Safety Report 4933476-1 (Version None)
Quarter: 2006Q1

REPORT INFORMATION
  Report Type: 
  Country: None (occurrence: None)
  Receive Date: 20060111
  Receipt Date: 20050402
  Transmission Date: 20060701
  Serious: Yes (Hospitalization)
  Sender: FDA-Public Use
  Company Number: A001-002-006450

PATIENT
  Age: 84 Year
  Sex: Male
  Weight: 59 kg

DRUGS (16)
  1. ARICEPT [Suspect]
     Indication: CONFUSIONAL STATE
     Dosage: 10 MG, 1 IN 1 D, ORAL
     Route: 048
     Dates: start: 20040101
  2. NAMENDA [Suspect]
     Dosage: 20 MG, 2 IN 1 D, ORAL
     Route: 048
     Dates: start: 20040101
  3. CELEBREX [Concomitant]
  4. LISINOPRIL [Concomitant]
  5. LANOXIN [Concomitant]
  6. SIMVASTATIN [Concomitant]
  7. COUMADIN [Concomitant]
  8. ISOSORBIDE DINITRATE [Concomitant]
  9. ZANTAC [Concomitant]
  10. THEOPHYLLINE [Concomitant]
  11. TRENTAL [Concomitant]
  12. VITAMIN E [Concomitant]
  13. CLARITIN [Concomitant]
  14. FIBER CAPLET (UNSPECIFIED) [Concomitant]
  15. NASONEX [Concomitant]
  16. AMITRIPTYLINE (AMITRIPTYLINE) [Concomitant]

REACTIONS (8)
  - ABDOMINAL PAIN UPPER [None]
  - ABNORMAL DREAMS [None]
  - AGITATION [None]
  - ANOREXIA [None]
  - ANXIETY [None]
  - DEPRESSION [None]
  - DYSPNOEA [None]
  - PNEUMONIA [None]
